FAERS Safety Report 11323606 (Version 1)
Quarter: 2015Q3

REPORT INFORMATION
  Report Type: Spontaneous
  Country: US (occurrence: None)
  Receive Date: 20150729
  Receipt Date: 20150729
  Transmission Date: 20151125
  Serious: Yes (Other)
  Sender: FDA-Public Use
  Company Number: None

PATIENT
  Age: 48 Year
  Sex: Female
  Weight: 67.13 kg

DRUGS (1)
  1. CUBICIN [Suspect]
     Active Substance: DAPTOMYCIN
     Indication: INTERVERTEBRAL DISCITIS
     Route: 042
     Dates: start: 20150529, end: 20150601

REACTIONS (1)
  - Angioedema [None]

NARRATIVE: CASE EVENT DATE: 20150601
